FAERS Safety Report 8603962 (Version 3)
Quarter: 2013Q1

REPORT INFORMATION
  Report Type: Spontaneous
  Country: IT (occurrence: IT)
  Receive Date: 20120608
  Receipt Date: 20130131
  Transmission Date: 20140127
  Serious: Yes (Hospitalization)
  Sender: FDA-Public Use
  Company Number: IT-AMGEN-ITASP2012034239

PATIENT
  Age: 42 Year
  Sex: Male

DRUGS (3)
  1. ENBREL [Suspect]
     Indication: PSORIATIC ARTHROPATHY
     Dosage: 50 MG, WEEKLY
     Route: 058
     Dates: start: 20110401, end: 20120518
  2. PEGINTRON                          /01543001/ [Concomitant]
     Dosage: 120 UG, UNK
     Route: 058
  3. REBETOL [Concomitant]
     Dosage: 1200 MG, UNK
     Route: 048

REACTIONS (3)
  - Weight decreased [Unknown]
  - Hyperpyrexia [Unknown]
  - Lymphadenopathy [Unknown]
